FAERS Safety Report 8850554 (Version 2)
Quarter: 2012Q4

REPORT INFORMATION
  Report Type: 
  Country: US (occurrence: US)
  Receive Date: 20121019
  Receipt Date: 20121127
  Transmission Date: 20130627
  Serious: Yes (Hospitalization)
  Sender: FDA-Public Use
  Company Number: US-ELI_LILLY_AND_COMPANY-US201210005685

PATIENT
  Age: 48 Year
  Sex: Male
  Weight: 145 kg

DRUGS (16)
  1. CYMBALTA [Suspect]
     Indication: ANXIETY
     Dosage: UNK, unknown
     Route: 048
     Dates: end: 20110811
  2. GABAPENTIN [Concomitant]
     Indication: PAIN
     Dosage: UNK, unknown
  3. PREGABALIN [Concomitant]
     Indication: PAIN
     Dosage: UNK, unknown
  4. XANAX [Concomitant]
     Dosage: 0.25 mg, prn
  5. ASA [Concomitant]
     Dosage: 81 mg, qd
  6. AMBIEN [Concomitant]
     Dosage: 10 mg, qd
  7. EFFIENT [Concomitant]
     Dosage: 10 mg, qd
  8. DIGOXIN [Concomitant]
     Dosage: 0.25 mg, qd
  9. LISINOPRIL [Concomitant]
     Dosage: 20 mg, qd
  10. LASIX [Concomitant]
     Dosage: 80 mg, qd
  11. PROTONIX [Concomitant]
     Dosage: 40 mg, qd
  12. LANTUS [Concomitant]
     Dosage: 60 u, bid
  13. NOVOLOG [Concomitant]
  14. ALBUTEROL [Concomitant]
  15. CLONIDINE [Concomitant]
  16. K-DUR [Concomitant]
     Dosage: 10 mg, qd

REACTIONS (1)
  - Mental status changes [Recovered/Resolved]
